FAERS Safety Report 7435313-2 (Version None)
Quarter: 2011Q2

REPORT INFORMATION
  Report Type: 
  Country: None (occurrence: None)
  Receive Date: 20110425
  Receipt Date: 20110414
  Transmission Date: 20111010
  Serious: Yes (Other)
  Sender: FDA-Public Use
  Company Number: FR-JNJFOC-20110405693

PATIENT
  Age: 53 Year
  Sex: Female

DRUGS (1)
  1. DOXORUBICIN HCL [Suspect]
     Indication: PRODUCT USED FOR UNKNOWN INDICATION
     Route: 042

REACTIONS (8)
  - DYSPNOEA [None]
  - TETANY [None]
  - PAIN IN EXTREMITY [None]
  - SWELLING [None]
  - BLOOD PRESSURE INCREASED [None]
  - HOT FLUSH [None]
  - SKIN REACTION [None]
  - INFUSION RELATED REACTION [None]
